FAERS Safety Report 15433718 (Version 1)
Quarter: 2018Q4

REPORT INFORMATION
  Report Type: Spontaneous
  Country: BR (occurrence: BR)
  Receive Date: 20180927
  Receipt Date: 20180927
  Transmission Date: 20190204
  Serious: Yes (Other)
  Sender: FDA-Public Use
  Company Number: BR-LUPIN PHARMACEUTICALS INC.-2018-06577

PATIENT
  Age: 51 Year
  Sex: Female

DRUGS (1)
  1. HYDROXYCHLOROQUINE [Suspect]
     Active Substance: HYDROXYCHLOROQUINE
     Indication: PRODUCT USED FOR UNKNOWN INDICATION
     Dosage: 400 MG, QD, 5MG/KG/DAY
     Route: 065

REACTIONS (5)
  - Tinnitus [None]
  - Ototoxicity [Not Recovered/Not Resolved]
  - Dysacusis [None]
  - Deafness neurosensory [None]
  - Deafness bilateral [None]
